FAERS Safety Report 6810939-5 (Version None)
Quarter: 2010Q2

REPORT INFORMATION
  Report Type: 
  Country: None (occurrence: None)
  Receive Date: 20100630
  Receipt Date: 20080917
  Transmission Date: 20101027
  Serious: No
  Sender: FDA-Public Use
  Company Number: US-PFIZER INC-2008078747

PATIENT
  Sex: Female
  Weight: 55.454 kg

DRUGS (3)
  1. ESTRING [Suspect]
     Indication: VAGINAL INFECTION
     Route: 067
     Dates: start: 20080912, end: 20080916
  2. PRILOSEC [Concomitant]
     Indication: GASTROOESOPHAGEAL REFLUX DISEASE
  3. ATENOLOL [Concomitant]

REACTIONS (6)
  - DEVICE DIFFICULT TO USE [None]
  - VAGINITIS BACTERIAL [None]
  - VULVOVAGINAL BURNING SENSATION [None]
  - VULVOVAGINAL DISCOMFORT [None]
  - VULVOVAGINAL PAIN [None]
  - VULVOVAGINAL PRURITUS [None]
